FAERS Safety Report 18044496 (Version 1)
Quarter: 2020Q3

REPORT INFORMATION
  Report Type: Spontaneous
  Country: TW (occurrence: TW)
  Receive Date: 20200720
  Receipt Date: 20200720
  Transmission Date: 20201103
  Serious: Yes (Hospitalization)
  Sender: FDA-Public Use
  Company Number: TW-ELI_LILLY_AND_COMPANY-TW202007003721

PATIENT
  Age: 43 Year
  Sex: Male

DRUGS (1)
  1. TALTZ [Suspect]
     Active Substance: IXEKIZUMAB
     Indication: PSORIASIS
     Dosage: 80 MG, 2/M
     Route: 058
     Dates: start: 20200609, end: 20200630

REACTIONS (2)
  - Cellulitis [Recovered/Resolved]
  - Cholecystitis [Recovered/Resolved]
